FAERS Safety Report 17138715 (Version 1)
Quarter: 2019Q4

REPORT INFORMATION
  Report Type: Spontaneous
  Country: US (occurrence: US)
  Receive Date: 20191119
  Receipt Date: 20191119
  Transmission Date: 20200122
  Serious: No
  Sender: FDA-Public Use
  Company Number: None

PATIENT
  Age: 71 Year
  Sex: Male

DRUGS (1)
  1. ATORVASTATIN [Suspect]
     Active Substance: ATORVASTATIN
     Indication: HYPERLIPIDAEMIA
     Dates: start: 20190511, end: 20191004

REACTIONS (3)
  - Acute kidney injury [None]
  - Myalgia [None]
  - Hepatic enzyme increased [None]

NARRATIVE: CASE EVENT DATE: 20191004
